FAERS Safety Report 8182927-0 (Version None)
Quarter: 2012Q1

REPORT INFORMATION
  Report Type: 
  Country: None (occurrence: None)
  Receive Date: 20120305
  Receipt Date: 20111122
  Transmission Date: 20120608
  Serious: Yes (Death, Hospitalization, Other)
  Sender: FDA-Public Use
  Company Number: BE-AMGEN-BELSP2011070039

PATIENT
  Age: 82 Year
  Sex: Male

DRUGS (1)
  1. VECTIBIX [Suspect]
     Indication: COLORECTAL CANCER METASTATIC
     Dosage: UNK
     Dates: start: 20090501, end: 20100501

REACTIONS (11)
  - LOSS OF CONSCIOUSNESS [None]
  - CEREBROVASCULAR ACCIDENT [None]
  - METASTASES TO LIVER [None]
  - ENCEPHALOPATHY [None]
  - TOXICITY TO VARIOUS AGENTS [None]
  - FALL [None]
  - HAEMOPTYSIS [None]
  - PAIN [None]
  - DISEASE PROGRESSION [None]
  - LYMPHADENOPATHY [None]
  - DEATH [None]
